FAERS Safety Report 25700819 (Version 1)
Quarter: 2025Q3

REPORT INFORMATION
  Report Type: Spontaneous
  Country: US (occurrence: US)
  Receive Date: 20250819
  Receipt Date: 20250819
  Transmission Date: 20251021
  Serious: No
  Sender: SANOFI AVENTIS
  Company Number: US-SA-2025SA245539

PATIENT
  Age: 61 Year
  Sex: Female

DRUGS (1)
  1. DUPIXENT [Suspect]
     Active Substance: DUPILUMAB
     Indication: Asthma
     Dosage: 300 MG, QOW
     Route: 058

REACTIONS (7)
  - COVID-19 [Unknown]
  - Gait disturbance [Unknown]
  - Weight increased [Unknown]
  - Asthma [Unknown]
  - Injection site pain [Unknown]
  - Injection site swelling [Unknown]
  - Therapeutic response decreased [Unknown]
